FAERS Safety Report 6832419-3 (Version None)
Quarter: 2010Q3

REPORT INFORMATION
  Report Type: 
  Country: None (occurrence: None)
  Receive Date: 20100712
  Receipt Date: 20070308
  Transmission Date: 20110219
  Serious: No
  Sender: FDA-Public Use
  Company Number: US-PFIZER INC-2007020468

PATIENT
  Sex: Female

DRUGS (5)
  1. CHANTIX [Suspect]
     Indication: SMOKING CESSATION THERAPY
     Dates: start: 20070201
  2. INDERAL [Concomitant]
  3. TRICOR [Concomitant]
  4. QUINAPRIL [Concomitant]
  5. ACETYLSALICYLIC ACID [Concomitant]

REACTIONS (6)
  - DRUG INTOLERANCE [None]
  - DYSPNOEA [None]
  - NAUSEA [None]
  - RASH [None]
  - UNEVALUABLE EVENT [None]
  - WEIGHT INCREASED [None]
